FAERS Safety Report 6045790-X (Version None)
Quarter: 2009Q1

REPORT INFORMATION
  Report Type: 
  Country: None (occurrence: None)
  Receive Date: 20090121
  Receipt Date: 20090115
  Transmission Date: 20090719
  Serious: Yes (Other)
  Sender: FDA-Public Use
  Company Number: US-JNJCH-2009001477

PATIENT
  Age: 72 Year
  Sex: Female
  Weight: 61.2 kg

DRUGS (2)
  1. ROGAINE [Suspect]
     Indication: ALOPECIA
     Dosage: TEXT:1ML 2X A DAY
     Route: 061
  2. LEVOXYL [Concomitant]
     Indication: HYPOTHYROIDISM
     Dosage: DAILY DOSE:.25MG-TEXT:1
     Route: 065

REACTIONS (2)
  - RENAL CANCER [None]
  - WRONG DRUG ADMINISTERED [None]
